FAERS Safety Report 6681951-4 (Version None)
Quarter: 2010Q2

REPORT INFORMATION
  Report Type: 
  Country: None (occurrence: None)
  Receive Date: 20100405
  Receipt Date: 20100323
  Transmission Date: 20101027
  Serious: Yes (Life-Threatening, Other)
  Sender: FDA-Public Use
  Company Number: THYM-1001343

PATIENT
  Age: 29 Year
  Sex: Male
  Weight: 58 kg

DRUGS (6)
  1. THYMOGLOBULIN [Suspect]
     Indication: RENAL TRANSPLANT
     Dosage: 100 MG, ONCE, INTRAVENOUS; 75 MG, ONCE, INTRAVENOUS; 50 MG, QD, INTRAVENOUS
     Route: 042
     Dates: start: 20091219, end: 20091219
  2. THYMOGLOBULIN [Suspect]
     Indication: RENAL TRANSPLANT
     Dosage: 100 MG, ONCE, INTRAVENOUS; 75 MG, ONCE, INTRAVENOUS; 50 MG, QD, INTRAVENOUS
     Route: 042
     Dates: start: 20091220, end: 20091220
  3. THYMOGLOBULIN [Suspect]
     Indication: RENAL TRANSPLANT
     Dosage: 100 MG, ONCE, INTRAVENOUS; 75 MG, ONCE, INTRAVENOUS; 50 MG, QD, INTRAVENOUS
     Route: 042
     Dates: start: 20091221, end: 20091223
  4. BACTRIM [Suspect]
     Indication: INFECTION
     Dosage: 400 MG, QD,
     Dates: start: 20091221
  5. PROGRAF [Concomitant]
  6. PREDNISONE [Concomitant]

REACTIONS (5)
  - ARTHROPATHY [None]
  - COAGULATION FACTOR V LEVEL DECREASED [None]
  - HEPATITIS FULMINANT [None]
  - PROTHROMBIN TIME PROLONGED [None]
  - SERUM SICKNESS [None]
